FAERS Safety Report 9033260 (Version 1)
Quarter: 2013Q1

REPORT INFORMATION
  Report Type: Spontaneous
  Country: US (occurrence: US)
  Receive Date: 20130128
  Receipt Date: 20130128
  Transmission Date: 20140127
  Serious: Yes (Hospitalization)
  Sender: FDA-Public Use
  Company Number: US-GILEAD-2012-0063692

PATIENT
  Sex: Male

DRUGS (2)
  1. CAYSTON [Suspect]
     Indication: CYSTIC FIBROSIS
     Dosage: UNK
     Route: 048
     Dates: end: 2012
  2. CAYSTON [Suspect]
     Dosage: UNK
     Route: 048
     Dates: start: 201210

REACTIONS (1)
  - Infective pulmonary exacerbation of cystic fibrosis [Unknown]
